FAERS Safety Report 24595306 (Version 2)
Quarter: 2025Q3

REPORT INFORMATION
  Report Type: Spontaneous
  Country: EU (occurrence: EU)
  Receive Date: 20241109
  Receipt Date: 20250809
  Transmission Date: 20251021
  Serious: Yes (Other)
  Sender: ALEXION PHARMACEUTICALS
  Company Number: EU-AstraZeneca-CH-00712764A

PATIENT
  Sex: Female

DRUGS (14)
  1. DAPAGLIFLOZIN [Suspect]
     Active Substance: DAPAGLIFLOZIN
  2. SITAGLIPTIN [Concomitant]
     Active Substance: SITAGLIPTIN
  3. INSULIN NOS [Concomitant]
     Active Substance: INSULIN NOS
  4. IRBESARTAN [Concomitant]
     Active Substance: IRBESARTAN
  5. FUROSEMIDE [Concomitant]
     Active Substance: FUROSEMIDE
  6. CANDESARTAN [Concomitant]
     Active Substance: CANDESARTAN
  7. ALLOPURINOL [Concomitant]
     Active Substance: ALLOPURINOL
  8. ASPIRIN [Concomitant]
     Active Substance: ASPIRIN
  9. CLOPIDOGREL [Concomitant]
     Active Substance: CLOPIDOGREL BISULFATE
  10. NEBIVOLOL [Concomitant]
     Active Substance: NEBIVOLOL
  11. AMLODIPINE [Concomitant]
     Active Substance: AMLODIPINE BESYLATE
  12. Rilmenidinum [Concomitant]
  13. ATORVASTATIN [Concomitant]
     Active Substance: ATORVASTATIN
  14. ISOSORBIDE MONONITRATE [Concomitant]
     Active Substance: ISOSORBIDE MONONITRATE

REACTIONS (2)
  - Glomerular filtration rate decreased [Unknown]
  - Urine albumin/creatinine ratio abnormal [Unknown]
